FAERS Safety Report 18783368 (Version 1)
Quarter: 2021Q1

REPORT INFORMATION
  Report Type: Spontaneous
  Country: US (occurrence: US)
  Receive Date: 20210125
  Receipt Date: 20210125
  Transmission Date: 20210419
  Serious: Yes (Hospitalization)
  Sender: FDA-Public Use
  Company Number: US-NOVOPROD-781088

PATIENT
  Age: 54 Year
  Sex: Male

DRUGS (1)
  1. NOVOLIN 70/30 [Suspect]
     Active Substance: INSULIN HUMAN
     Indication: PRODUCT USED FOR UNKNOWN INDICATION
     Dosage: 25 TO 30 UNITS IN THE AM + 12? 15 UNITS IN THE PM
     Route: 058
     Dates: start: 2006

REACTIONS (11)
  - Peripheral swelling [Unknown]
  - Condition aggravated [Not Recovered/Not Resolved]
  - Insomnia [Not Recovered/Not Resolved]
  - Gait inability [Unknown]
  - Product quality issue [Unknown]
  - Pain in extremity [Unknown]
  - Blood glucose increased [Unknown]
  - Surgery [Unknown]
  - Back pain [Unknown]
  - Neuropathy peripheral [Not Recovered/Not Resolved]
  - Amnesia [Unknown]

NARRATIVE: CASE EVENT DATE: 20201022
